FAERS Safety Report 19778174 (Version 1)
Quarter: 2021Q3

REPORT INFORMATION
  Report Type: Spontaneous
  Country: US (occurrence: US)
  Receive Date: 20210831
  Receipt Date: 20210831
  Transmission Date: 20211014
  Serious: No
  Sender: FDA-Public Use
  Company Number: None

PATIENT
  Sex: Female

DRUGS (1)
  1. AJOVY [Suspect]
     Active Substance: FREMANEZUMAB-VFRM
     Indication: MIGRAINE
     Dosage: ?          OTHER STRENGTH:225MG/1.5M;?
     Route: 058
     Dates: start: 202105

REACTIONS (4)
  - Loss of consciousness [None]
  - Dysphagia [None]
  - Pharyngeal paraesthesia [None]
  - Paraesthesia [None]
